FAERS Safety Report 12642838 (Version 6)
Quarter: 2016Q4

REPORT INFORMATION
  Report Type: Spontaneous
  Country: US (occurrence: US)
  Receive Date: 20160811
  Receipt Date: 20161207
  Transmission Date: 20170207
  Serious: Yes (Congenital Anomaly, Other)
  Sender: FDA-Public Use
  Company Number: PHHY2015US127304

PATIENT
  Sex: Male

DRUGS (1)
  1. ZOFRAN ODT [Suspect]
     Active Substance: ONDANSETRON HYDROCHLORIDE
     Indication: FOETAL EXPOSURE DURING PREGNANCY
     Dosage: MOTHER^S DOSE: 8 MG
     Route: 064

REACTIONS (26)
  - Sleep apnoea syndrome [Unknown]
  - Speech disorder [Unknown]
  - Noninfective gingivitis [Unknown]
  - Otitis media chronic [Unknown]
  - Foetal exposure during pregnancy [Unknown]
  - Drooling [Unknown]
  - Speech sound disorder [Unknown]
  - Gingival bleeding [Unknown]
  - Middle ear effusion [Unknown]
  - Tonsillar hypertrophy [Unknown]
  - Cough [Unknown]
  - Cleft palate [Unknown]
  - Congenital pharyngeal anomaly [Unknown]
  - Cellulitis [Unknown]
  - Restless legs syndrome [Unknown]
  - Oral disorder [Unknown]
  - Congenital nose malformation [Unknown]
  - Ear infection [Unknown]
  - Eustachian tube dysfunction [Unknown]
  - Asthma [Unknown]
  - Neonatal respiratory distress syndrome [Unknown]
  - Otitis media [Unknown]
  - Cleft lip [Unknown]
  - Bronchiolitis [Unknown]
  - Keloid scar [Unknown]
  - Dysphagia [Unknown]
